FAERS Safety Report 25953212 (Version 1)
Quarter: 2025Q4

REPORT INFORMATION
  Report Type: Report from Study
  Country: US (occurrence: US)
  Receive Date: 20251023
  Receipt Date: 20251023
  Transmission Date: 20260117
  Serious: Yes (Other)
  Sender: OTSUKA
  Company Number: US-MMM-Otsuka-BYLOV428

PATIENT
  Sex: Female

DRUGS (2)
  1. TOLVAPTAN [Suspect]
     Active Substance: TOLVAPTAN
     Indication: Congenital cystic kidney disease
     Dosage: 45 MG, QD
     Dates: start: 2025
  2. TOLVAPTAN [Suspect]
     Active Substance: TOLVAPTAN
     Dosage: 15 MG, QD
     Dates: start: 2025

REACTIONS (6)
  - Renal haemorrhage [Unknown]
  - Ocular discomfort [Unknown]
  - Hypomenorrhoea [Unknown]
  - Muscle spasms [Unknown]
  - Headache [Unknown]
  - Pollakiuria [Recovered/Resolved]
